FAERS Safety Report 19820973 (Version 1)
Quarter: 2021Q3

REPORT INFORMATION
  Report Type: Spontaneous
  Country: US (occurrence: US)
  Receive Date: 20210909
  Receipt Date: 20210909
  Transmission Date: 20211014
  Serious: Yes (Hospitalization)
  Sender: FDA-Public Use
  Company Number: None

PATIENT
  Age: 60 Year
  Sex: Female

DRUGS (1)
  1. TOBRAMYCIN INH SOLN  4ML AMPS 300MG/4ML  TEVA PHARMACEUTICALS USA [Suspect]
     Active Substance: TOBRAMYCIN
     Indication: LUNG TRANSPLANT
     Dosage: TWICE DAILY FOR 14 DAYS ON, THEN 14 DAYS OFF.?
     Route: 055
     Dates: start: 202011

REACTIONS (1)
  - Atrial fibrillation [None]

NARRATIVE: CASE EVENT DATE: 20210413
